FAERS Safety Report 9259606 (Version 1)
Quarter: 2013Q2

REPORT INFORMATION
  Report Type: Spontaneous
  Country: US (occurrence: US)
  Receive Date: 20130429
  Receipt Date: 20130429
  Transmission Date: 20140414
  Serious: Yes (Other)
  Sender: FDA-Public Use
  Company Number: US-JNJCP-30000158379

PATIENT
  Sex: Female
  Weight: 68 kg

DRUGS (15)
  1. NEUTROGENA ULTRA GENTLE SOOTHING LOTION SPF15 [Suspect]
     Indication: DRY SKIN PROPHYLAXIS
     Dosage: IN DIME SIZE EACH TIME TWICE A DAY IN MORNING AND EVENING
     Route: 061
     Dates: start: 2012
  2. NO DRUG NAME [Concomitant]
  3. NO DRUG NAME [Concomitant]
  4. NO DRUG NAME [Concomitant]
  5. NTG HEALTHY SKIN FACE LOTION SPF15 USA NTHSFLUS [Suspect]
     Indication: ACNE
     Dosage: IN DIME SIZE AMOUNT ONCE A DAY IN MORNING
     Route: 061
     Dates: start: 2012
  6. NO DRUG NAME [Concomitant]
  7. NO DRUG NAME [Concomitant]
  8. NO DRUG NAME [Concomitant]
  9. NO DRUG NAME [Concomitant]
  10. NO DRUG NAME [Concomitant]
  11. NO DRUG NAME [Concomitant]
  12. ADERAL 10 ML [Concomitant]
     Indication: DISTURBANCE IN ATTENTION
     Dosage: 10 MG TWICE PER DAY SINCE TWO YEARS
  13. MULTI-VITAMIN [Concomitant]
     Indication: ROUTINE HEALTH MAINTENANCE
     Dosage: ONCE PER DAY SINCE MORE THAN TWENTY YEARS
  14. NUVARING [Concomitant]
     Indication: CONTRACEPTION
     Dosage: INSERTED SINCE MORE THAN THREE YEARS
  15. ADDERALL 10 MG [Concomitant]
     Indication: DISTURBANCE IN ATTENTION
     Dosage: 10 MG TWICE PER DAY

REACTIONS (2)
  - Acne cosmetica [Recovered/Resolved]
  - Application site rash [Recovered/Resolved]
